FAERS Safety Report 9230495 (Version 1)
Quarter: 2013Q1

REPORT INFORMATION
  Report Type: Spontaneous
  Country: US (occurrence: None)
  Receive Date: 20121019
  Receipt Date: 20121019
  Transmission Date: 20140127
  Serious: No
  Sender: FDA-Public Use
  Company Number: 2011P1011775

PATIENT
  Sex: 0

DRUGS (8)
  1. FENTANYL PATCH [Suspect]
     Indication: BACK DISORDER
     Dates: start: 2010, end: 2010
  2. FENTANYL PATCH [Suspect]
     Indication: BACK DISORDER
     Dosage: 1 PATCH; Q72H; TDER
     Dates: start: 2010
  3. LISINOPRIL [Concomitant]
  4. TRAZODONE [Concomitant]
  5. ALENDRONATE [Concomitant]
  6. VITAMIN [Concomitant]
  7. CALCIUM PLUS [Concomitant]
  8. COMPLETE MULTIVITAMIN A-Z [Concomitant]

REACTIONS (3)
  - Decreased appetite [None]
  - Weight decreased [None]
  - Drug ineffective [None]
